FAERS Safety Report 8796021 (Version 5)
Quarter: 2013Q1

REPORT INFORMATION
  Report Type: Report from Study
  Country: US (occurrence: US)
  Receive Date: 20120920
  Receipt Date: 20130226
  Transmission Date: 20140127
  Serious: Yes (Hospitalization)
  Sender: FDA-Public Use
  Company Number: US-JNJFOC-20120908176

PATIENT
  Age: 13 Year
  Sex: Male
  Weight: 54.9 kg

DRUGS (14)
  1. REMICADE [Suspect]
     Indication: INFLAMMATORY BOWEL DISEASE
     Route: 042
     Dates: start: 20090714
  2. HUMIRA [Concomitant]
     Indication: INFLAMMATORY BOWEL DISEASE
     Dates: start: 20101122
  3. TOPAMAX [Concomitant]
  4. ZANTAC [Concomitant]
  5. FLONASE [Concomitant]
     Dosage: 50 MCG/SPRAY NASAL
     Route: 045
  6. BENADRYL [Concomitant]
     Dosage: 25 MG INJECTION EVERY 8 HOURS
  7. FIORICET [Concomitant]
  8. REGLAN [Concomitant]
  9. NUBAIN [Concomitant]
  10. FLEXERIL [Concomitant]
  11. MYLANTA [Concomitant]
  12. LANSOPRAZOLE [Concomitant]
  13. ALL OTHER THERAPEUTIC PRODUCT [Concomitant]
  14. SOLU - MEDROL [Concomitant]

REACTIONS (2)
  - Migraine [Recovered/Resolved]
  - Headache [Recovered/Resolved]
